FAERS Safety Report 6135962-8 (Version None)
Quarter: 2009Q1

REPORT INFORMATION
  Report Type: 
  Country: None (occurrence: None)
  Receive Date: 20090329
  Receipt Date: 20080306
  Transmission Date: 20090719
  Serious: No
  Sender: FDA-Public Use
  Company Number: US-BAUSCH-2008BL001007

PATIENT
  Age: 86 Year
  Sex: Female

DRUGS (8)
  1. LOTEMAX [Suspect]
     Indication: KERATOCONJUNCTIVITIS SICCA
     Route: 047
     Dates: start: 20080220, end: 20080304
  2. ARTIFICIAL TEARS [Concomitant]
     Indication: KERATOCONJUNCTIVITIS SICCA
     Route: 047
  3. KLONOPIN [Concomitant]
     Indication: ANXIETY
  4. ACIPHEX [Concomitant]
     Indication: GASTROOESOPHAGEAL REFLUX DISEASE
  5. FOSAMAX /ITA/ [Concomitant]
     Indication: OSTEOPOROSIS
  6. CALCIUM [Concomitant]
     Indication: VITAMIN SUPPLEMENTATION
  7. MAGNESIUM SULFATE [Concomitant]
     Indication: VITAMIN SUPPLEMENTATION
  8. ASCORBIC ACID [Concomitant]
     Indication: VITAMIN SUPPLEMENTATION

REACTIONS (4)
  - ASTHENOPIA [None]
  - EYE IRRITATION [None]
  - EYE PAIN [None]
  - KERATOCONJUNCTIVITIS SICCA [None]
